FAERS Safety Report 9517891 (Version 2)
Quarter: 2013Q4

REPORT INFORMATION
  Report Type: Spontaneous
  Country: JP (occurrence: JP)
  Receive Date: 20130912
  Receipt Date: 20131018
  Transmission Date: 20140711
  Serious: Yes (Other)
  Sender: FDA-Public Use
  Company Number: JP-RANBAXY-2013RR-72934

PATIENT
  Age: 76 Year
  Sex: Male

DRUGS (3)
  1. SERTRALINE [Suspect]
     Indication: ANTIDEPRESSANT THERAPY
     Dosage: UNK
     Route: 065
  2. SERTRALINE [Suspect]
     Indication: ANTIDEPRESSANT THERAPY
     Dosage: 50 MG
     Route: 065
  3. LAMOTRIGINE [Concomitant]
     Indication: TEMPORAL LOBE EPILEPSY
     Dosage: UNK
     Route: 065

REACTIONS (2)
  - Status epilepticus [Recovering/Resolving]
  - Depressed level of consciousness [Recovering/Resolving]
